FAERS Safety Report 5656147-5 (Version None)
Quarter: 2008Q1

REPORT INFORMATION
  Report Type: 
  Country: None (occurrence: None)
  Receive Date: 20080305
  Receipt Date: 20080226
  Transmission Date: 20080703
  Serious: Yes (Hospitalization)
  Sender: FDA-Public Use
  Company Number: ADE2008-0134

PATIENT
  Age: 73 Year
  Sex: Male

DRUGS (8)
  1. CARVEDILOL [Suspect]
     Indication: CARDIAC DISORDER
     Dosage: 12.5MG,DAILY
  2. PREDNISONE TAB [Concomitant]
  3. LEVOTHYROXINE SODIUM [Concomitant]
  4. FUROSEMIDE [Concomitant]
  5. POTASSIUM SALT [Concomitant]
  6. FERROUS SULFATE TAB [Concomitant]
  7. ASPIRIN [Concomitant]
  8. DILTIAZEM [Concomitant]

REACTIONS (2)
  - PNEUMONITIS [None]
  - PULMONARY OEDEMA [None]
